FAERS Safety Report 12651564 (Version 1)
Quarter: 2016Q3

REPORT INFORMATION
  Report Type: Spontaneous
  Country: NL (occurrence: NL)
  Receive Date: 20160815
  Receipt Date: 20160815
  Transmission Date: 20161109
  Serious: Yes (Life-Threatening, Hospitalization)
  Sender: FDA-Public Use
  Company Number: NL-GUERBET LLC-1056312

PATIENT
  Age: 25 Year
  Sex: Female
  Weight: 58 kg

DRUGS (1)
  1. DOTAREM [Suspect]
     Active Substance: GADOTERATE MEGLUMINE
     Indication: NUCLEAR MAGNETIC RESONANCE IMAGING
     Dates: start: 20160510, end: 20160510

REACTIONS (5)
  - Dyspnoea [Unknown]
  - Rash [Unknown]
  - Tachycardia [Unknown]
  - Emotional distress [Unknown]
  - Swelling face [Unknown]

NARRATIVE: CASE EVENT DATE: 20160510
